FAERS Safety Report 4885102-8 (Version None)
Quarter: 2006Q1

REPORT INFORMATION
  Report Type: 
  Country: None (occurrence: None)
  Receive Date: 20060119
  Receipt Date: 20051208
  Transmission Date: 20060701
  Serious: Yes (Other)
  Sender: FDA-Public Use
  Company Number: US-BRISTOL-MYERS SQUIBB COMPANY-13208434

PATIENT
  Age: 33 Year
  Sex: Male
  Weight: 68 kg

DRUGS (3)
  1. BARACLUDE [Suspect]
     Indication: HEPATITIS B
     Route: 048
     Dates: start: 20050902
  2. VIRACEPT [Concomitant]
  3. VIREAD [Concomitant]

REACTIONS (1)
  - HIV TEST POSITIVE [None]
